FAERS Safety Report 15350661 (Version 1)
Quarter: 2018Q3

REPORT INFORMATION
  Report Type: Spontaneous
  Country: SE (occurrence: SE)
  Receive Date: 20180905
  Receipt Date: 20180905
  Transmission Date: 20181010
  Serious: Yes (Hospitalization)
  Sender: FDA-Public Use
  Company Number: SE-TEVA-2018-SE-951396

PATIENT
  Age: 18 Year
  Sex: Female
  Weight: 85 kg

DRUGS (4)
  1. OXASCAND [Concomitant]
     Active Substance: OXAZEPAM
     Dates: start: 201705, end: 201706
  2. TRUXAL [Concomitant]
     Active Substance: CHLORPROTHIXENE
     Dates: start: 201705, end: 201706
  3. VENLAFAXINE [Suspect]
     Active Substance: VENLAFAXINE HYDROCHLORIDE
     Indication: DEPRESSION
     Dates: start: 201611
  4. LERGIGAN [Concomitant]
     Dates: start: 2016, end: 2017

REACTIONS (9)
  - Aggression [Recovered/Resolved]
  - Suicidal ideation [Recovered/Resolved]
  - Panic attack [Recovered/Resolved]
  - Agoraphobia [Recovered/Resolved]
  - Mood swings [Recovered/Resolved]
  - Anxiety [Recovered/Resolved]
  - Depression [Recovered/Resolved]
  - Intentional self-injury [Recovered/Resolved]
  - Suicide attempt [Recovered/Resolved]

NARRATIVE: CASE EVENT DATE: 201701
